FAERS Safety Report 5424212-3 (Version None)
Quarter: 2007Q3

REPORT INFORMATION
  Report Type: 
  Country: None (occurrence: None)
  Receive Date: 20070726
  Receipt Date: 20060905
  Transmission Date: 20080115
  Serious: Yes (Hospitalization)
  Sender: FDA-Public Use
  Company Number: DRON00207000445

PATIENT
  Sex: Male
  Weight: 55.5 kg

DRUGS (5)
  1. DRONABINOL [Suspect]
     Indication: DECREASED APPETITE
     Dosage: 2.5 GRAM(S) TID ORAL DAILY DOSE: 7.5 GRAM(S)
     Route: 048
     Dates: start: 19910814, end: 19910911
  2. RETROVIR [Concomitant]
  3. PENTAMIDINE AEROSOL (PENTAMIDINE) [Concomitant]
  4. FLUCONAZOLE [Concomitant]
  5. ACYCLOVIR [Concomitant]

REACTIONS (6)
  - ANAEMIA [None]
  - ARTHRALGIA [None]
  - NEUROPATHY PERIPHERAL [None]
  - OESOPHAGITIS [None]
  - ORAL CANDIDIASIS [None]
  - PNEUMONIA [None]
